FAERS Safety Report 9007000 (Version 3)
Quarter: 2013Q1

REPORT INFORMATION
  Report Type: Report from Study
  Country: AU (occurrence: AU)
  Receive Date: 20130110
  Receipt Date: 20130325
  Transmission Date: 20140127
  Serious: Yes (Hospitalization, Other)
  Sender: FDA-Public Use
  Company Number: AU-TEVA-368282USA

PATIENT
  Age: 52 Year
  Sex: Female
  Weight: 89 kg

DRUGS (5)
  1. TREANDA [Suspect]
     Indication: NON-HODGKIN^S LYMPHOMA
     Route: 042
     Dates: start: 20101201, end: 20111031
  2. OBINUTUZUMAB [Suspect]
     Indication: B-CELL LYMPHOMA
     Dosage: 35.7143 MILLIGRAM DAILY; FOR FIRST SIX INDUCTIONS
     Route: 042
     Dates: start: 20101130
  3. OBINUTUZUMAB [Suspect]
     Dosage: 3 MONTHLY MAINTENANCE
     Route: 042
     Dates: end: 20111031
  4. FENTANYL [Concomitant]
     Dates: start: 20111017, end: 20111017
  5. SPAN-K [Concomitant]
     Dates: start: 20120531, end: 20120630

REACTIONS (3)
  - Pancytopenia [Recovered/Resolved]
  - Febrile neutropenia [Recovered/Resolved]
  - Neutropenic infection [Recovered/Resolved]
